FAERS Safety Report 8327051-9 (Version None)
Quarter: 2012Q2

REPORT INFORMATION
  Report Type: 
  Country: None (occurrence: None)
  Receive Date: 20120501
  Receipt Date: 20111215
  Transmission Date: 20120825
  Serious: No
  Sender: FDA-Public Use
  Company Number: US-SANOFI-AVENTIS-2011SA082276

PATIENT
  Age: 67 Year
  Sex: Female

DRUGS (2)
  1. APIDRA [Suspect]
     Route: 058
     Dates: start: 20110101, end: 20110101
  2. APIDRA [Suspect]
     Route: 058
     Dates: start: 20110101, end: 20110101

REACTIONS (3)
  - MYALGIA [None]
  - MUSCLE SPASMS [None]
  - ABDOMINAL PAIN UPPER [None]
